FAERS Safety Report 18527058 (Version 2)
Quarter: 2020Q4

REPORT INFORMATION
  Report Type: Report from Study
  Country: US (occurrence: US)
  Receive Date: 20201120
  Receipt Date: 20201208
  Transmission Date: 20210114
  Serious: Yes (Death)
  Sender: FDA-Public Use
  Company Number: US-UCBSA-2020045656

PATIENT
  Age: 91 Year
  Sex: Female
  Weight: 59 kg

DRUGS (1)
  1. LEVETIRACETAM. [Suspect]
     Active Substance: LEVETIRACETAM
     Indication: SEIZURE
     Dosage: 250MG 1.5 TABLETS, 2X/DAY (BID)
     Route: 048
     Dates: end: 20200707

REACTIONS (2)
  - Colon cancer stage IV [Fatal]
  - Product use issue [Unknown]

NARRATIVE: CASE EVENT DATE: 201909
